FAERS Safety Report 7356777-9 (Version None)
Quarter: 2011Q1

REPORT INFORMATION
  Report Type: 
  Country: None (occurrence: None)
  Receive Date: 20110316
  Receipt Date: 20110301
  Transmission Date: 20110831
  Serious: Yes (Death, Disabling, Other)
  Sender: FDA-Public Use
  Company Number: US-BAYER-200912047NA

PATIENT
  Sex: Male
  Weight: 81.273 kg

DRUGS (35)
  1. OPTIMARK [Suspect]
     Indication: NUCLEAR MAGNETIC RESONANCE IMAGING
     Dosage: UNK UNK, ONCE
     Dates: start: 20050901, end: 20050901
  2. PROHANCE [Suspect]
     Indication: NUCLEAR MAGNETIC RESONANCE IMAGING
  3. LOTREL [Concomitant]
  4. PRAVACHOL [Concomitant]
  5. RENA-VITE [VIT C,VIT H,B5,B12,B9,B3,B6,B2,B1 HCL] [Concomitant]
  6. OMNISCAN [Suspect]
     Indication: NUCLEAR MAGNETIC RESONANCE IMAGING
  7. PHOSLO [Concomitant]
     Route: 048
  8. NIFEREX [Concomitant]
  9. LEVOTHROID [Concomitant]
  10. MAGNEVIST [Suspect]
     Indication: NUCLEAR MAGNETIC RESONANCE IMAGING BRAIN
     Dates: start: 20060516, end: 20060516
  11. OPTIMARK [Suspect]
     Dosage: UNK
     Dates: start: 20060323, end: 20060323
  12. MULTIHANCE [Suspect]
     Indication: NUCLEAR MAGNETIC RESONANCE IMAGING
  13. COUMADIN [Concomitant]
  14. QUININE [Concomitant]
  15. IMODIUM [Concomitant]
  16. OMNISCAN [Suspect]
     Indication: NUCLEAR MAGNETIC RESONANCE IMAGING BRAIN
     Dosage: UNK
  17. ASCORBIC ACID W/FOLIC ACID/IRON/VITAMIN B12 [Concomitant]
  18. LANOXIN [Concomitant]
  19. LANTUS [Concomitant]
  20. NOVOLOG [Concomitant]
  21. MAGNEVIST [Suspect]
     Dosage: UNK
     Dates: start: 19990818, end: 19990818
  22. REGLAN [Concomitant]
  23. AVINZA [Concomitant]
  24. ACIPHEX [Concomitant]
  25. IMURAN [Concomitant]
     Dates: start: 19910101
  26. ACYCLOVIR [Concomitant]
     Dates: start: 19910101
  27. MORPHINE [Concomitant]
  28. NEPHROCAPS [Concomitant]
  29. CYCLOSPORINE [Concomitant]
     Dosage: 100 MG ONETIME DOSE
     Dates: start: 19910101, end: 19910101
  30. MAGNEVIST [Suspect]
     Indication: NUCLEAR MAGNETIC RESONANCE IMAGING
     Dates: start: 20051206, end: 20051206
  31. OMNISCAN [Suspect]
  32. PROTONIX [Concomitant]
  33. NEURONTIN [Concomitant]
  34. EPOGEN [Concomitant]
     Dosage: WITH EACH HD
  35. GASTROMARK [Concomitant]
     Indication: NUCLEAR MAGNETIC RESONANCE IMAGING ABDOMINAL
     Dates: start: 20060323, end: 20060323

REACTIONS (21)
  - POST INFLAMMATORY PIGMENTATION CHANGE [None]
  - SKIN EXFOLIATION [None]
  - OEDEMA [None]
  - SKIN INDURATION [None]
  - SKIN ULCER [None]
  - NEPHROGENIC SYSTEMIC FIBROSIS [None]
  - ANXIETY [None]
  - GENERAL PHYSICAL HEALTH DETERIORATION [None]
  - SKIN TIGHTNESS [None]
  - SKIN HYPERTROPHY [None]
  - EMOTIONAL DISTRESS [None]
  - ANHEDONIA [None]
  - RASH MACULAR [None]
  - JOINT RANGE OF MOTION DECREASED [None]
  - XEROSIS [None]
  - JOINT CONTRACTURE [None]
  - DRY SKIN [None]
  - PAIN [None]
  - NEUROPATHIC ARTHROPATHY [None]
  - STASIS DERMATITIS [None]
  - RASH GENERALISED [None]
